FAERS Safety Report 9548707 (Version 1)
Quarter: 2013Q2

REPORT INFORMATION
  Report Type: Spontaneous
  Country: US (occurrence: None)
  Receive Date: 20130627
  Receipt Date: 20130627
  Transmission Date: 20140414
  Serious: No
  Sender: FDA-Public Use
  Company Number: 1000043442

PATIENT
  Age: 72 Year
  Sex: Female

DRUGS (2)
  1. LINZESS [Suspect]
     Indication: CONSTIPATION
     Route: 048
     Dates: start: 20130315
  2. SUPPLEMENTS NOS (SUPPLEMENTS NOS) (SUPPLEMENTS NOS) [Concomitant]

REACTIONS (2)
  - Headache [None]
  - Thirst [None]
